FAERS Safety Report 7438758-X (Version None)
Quarter: 2011Q2

REPORT INFORMATION
  Report Type: 
  Country: None (occurrence: None)
  Receive Date: 20110426
  Receipt Date: 20110413
  Transmission Date: 20111010
  Serious: Yes (Other)
  Sender: FDA-Public Use
  Company Number: FR-CELGENEUS-056-C5013-10120041

PATIENT
  Sex: Male
  Weight: 67 kg

DRUGS (7)
  1. ASPIRIN [Concomitant]
     Indication: THROMBOSIS PROPHYLAXIS
     Dosage: 100 MILLIGRAM
     Route: 048
     Dates: start: 20100930
  2. LENALIDOMIDE [Suspect]
     Indication: MANTLE CELL LYMPHOMA
     Dosage: 5 MILLIGRAM
     Route: 048
     Dates: start: 20100707, end: 20100101
  3. COAPROVEL [Concomitant]
     Indication: HYPERTENSION
     Dosage: 130/ 12.5 MG
     Route: 048
     Dates: start: 20090101, end: 20101119
  4. COAPROVEL [Concomitant]
     Dosage: 300/25 MG
     Route: 048
     Dates: start: 20101120, end: 20101123
  5. COAPROVEL [Concomitant]
     Dosage: 300/12.5 MG
     Route: 048
     Dates: start: 20101124
  6. LENALIDOMIDE [Suspect]
     Dosage: 2.5 MILLIGRAM
     Route: 048
     Dates: start: 20101027, end: 20101124
  7. PRAVIGARD PAC (COPACKAGED) [Concomitant]
     Route: 048
     Dates: start: 20090101

REACTIONS (1)
  - SQUAMOUS CELL CARCINOMA [None]
